FAERS Safety Report 8437407-1 (Version None)
Quarter: 2012Q2

REPORT INFORMATION
  Report Type: 
  Country: None (occurrence: None)
  Receive Date: 20120614
  Receipt Date: 20120321
  Transmission Date: 20120825
  Serious: No
  Sender: FDA-Public Use
  Company Number: US-AMGEN-USASP2012018208

PATIENT
  Age: 67 Year
  Sex: Male

DRUGS (21)
  1. CRESTOR [Concomitant]
  2. NAMENDA [Concomitant]
  3. ASPIRIN [Concomitant]
  4. VITAMIN D [Concomitant]
  5. MULTIVITAMIN                       /00097801/ [Concomitant]
  6. CLONAZEPAM [Concomitant]
  7. TRAZODONE HCL [Concomitant]
  8. PLAVIX [Concomitant]
  9. LANTUS [Concomitant]
  10. NITROGLYCERIN [Concomitant]
  11. ALBUTEROL [Concomitant]
  12. NOVOLOG [Concomitant]
  13. HYDROXYZINE [Concomitant]
  14. IRON [Concomitant]
  15. PROLIA [Suspect]
     Indication: OSTEOPOROSIS
     Dosage: UNK
     Dates: start: 20120314
  16. OXYBUTYNIN                         /00538902/ [Concomitant]
  17. DIOVAN [Concomitant]
  18. TAMSULOSIN HCL [Concomitant]
  19. BUPROPION HYDROCHLORIDE [Concomitant]
  20. CALCIUM [Concomitant]
  21. FENOFIBRATE [Concomitant]

REACTIONS (1)
  - DRUG ADMINISTRATION ERROR [None]
